FAERS Safety Report 5828599-9 (Version None)
Quarter: 2008Q3

REPORT INFORMATION
  Report Type: 
  Country: None (occurrence: None)
  Receive Date: 20080731
  Receipt Date: 20080730
  Transmission Date: 20090109
  Serious: Yes (Death, Hospitalization, Other)
  Sender: FDA-Public Use
  Company Number: 11834538

PATIENT
  Age: 29 Year
  Sex: Male
  Weight: 70 kg

DRUGS (8)
  1. ZERIT [Suspect]
     Indication: HIV TEST POSITIVE
     Route: 048
     Dates: start: 19970619, end: 19970925
  2. DIDANOSINE [Suspect]
     Indication: HIV TEST POSITIVE
     Route: 048
     Dates: start: 19961215, end: 19970929
  3. INVIRASE [Suspect]
     Indication: HIV TEST POSITIVE
     Route: 048
     Dates: start: 19970619, end: 19970925
  4. INVIRASE [Suspect]
     Indication: CD4 LYMPHOCYTES DECREASED
     Route: 048
     Dates: start: 19970619, end: 19970925
  5. CO-TRIMOXAZOLE [Suspect]
     Indication: ANTIFUNGAL PROPHYLAXIS
     Route: 048
     Dates: start: 19960615, end: 19970929
  6. MULTI-VITAMINS [Suspect]
     Indication: PROPHYLAXIS
     Route: 048
     Dates: start: 19960101, end: 19970929
  7. ZIDOVUDINE [Concomitant]
     Indication: CD4 LYMPHOCYTES DECREASED
     Route: 048
     Dates: start: 19960815, end: 19970619
  8. ZALCITABINE [Concomitant]
     Indication: CD4 LYMPHOCYTES DECREASED
     Route: 048
     Dates: start: 19960615, end: 19970619

REACTIONS (11)
  - ACUTE HEPATIC FAILURE [None]
  - ASPARTATE AMINOTRANSFERASE INCREASED [None]
  - ATRIAL FIBRILLATION [None]
  - BLOOD ALKALINE PHOSPHATASE INCREASED [None]
  - HEPATIC STEATOSIS [None]
  - JAUNDICE [None]
  - LACTIC ACIDOSIS [None]
  - LIVER FUNCTION TEST ABNORMAL [None]
  - NAUSEA [None]
  - SEPSIS [None]
  - VOMITING [None]
